FAERS Safety Report 5579530-5 (Version None)
Quarter: 2008Q1

REPORT INFORMATION
  Report Type: 
  Country: None (occurrence: None)
  Receive Date: 20080102
  Receipt Date: 20071219
  Transmission Date: 20080703
  Serious: Yes (Other)
  Sender: FDA-Public Use
  Company Number: US-ELI_LILLY_AND_COMPANY-US200712004188

PATIENT
  Sex: Male
  Weight: 21.768 kg

DRUGS (1)
  1. STRATTERA [Suspect]
     Indication: ATTENTION DEFICIT/HYPERACTIVITY DISORDER
     Dosage: 25 MG, DAILY (1/D)
     Dates: start: 20060601, end: 20071215

REACTIONS (4)
  - DRUG INEFFECTIVE [None]
  - GROWTH RETARDATION [None]
  - MOOD SWINGS [None]
  - WEIGHT GAIN POOR [None]
